FAERS Safety Report 5173248-9 (Version None)
Quarter: 2006Q4

REPORT INFORMATION
  Report Type: 
  Country: None (occurrence: None)
  Receive Date: 20061214
  Receipt Date: 20061122
  Transmission Date: 20070319
  Serious: Yes (Disabling)
  Sender: FDA-Public Use
  Company Number: JP-BRISTOL-MYERS SQUIBB COMPANY-13588926

PATIENT
  Age: 37 Year
  Sex: Female

DRUGS (3)
  1. TAXOL [Suspect]
     Indication: BREAST CANCER
     Route: 041
     Dates: start: 20061031, end: 20061031
  2. KYTRIL [Concomitant]
     Route: 041
     Dates: start: 20061031, end: 20061031
  3. ORGADRONE [Concomitant]
     Route: 041
     Dates: start: 20061031, end: 20061031

REACTIONS (1)
  - STEVENS-JOHNSON SYNDROME [None]
